FAERS Safety Report 6623482-3 (Version None)
Quarter: 2010Q1

REPORT INFORMATION
  Report Type: 
  Country: None (occurrence: None)
  Receive Date: 20100304
  Receipt Date: 20100216
  Transmission Date: 20100710
  Serious: Yes (Hospitalization)
  Sender: FDA-Public Use
  Company Number: 2010BI001956

PATIENT
  Age: 51 Year

DRUGS (5)
  1. ZEVALIN [Suspect]
     Indication: NON-HODGKIN'S LYMPHOMA
  2. ZEVALIN [Suspect]
     Indication: STEM CELL TRANSPLANT
  3. RITUXIMAB [Concomitant]
  4. FLUDARABINE A [Concomitant]
  5. CYCLOSPORINE [Concomitant]

REACTIONS (1)
  - LARYNGEAL CANCER [None]
